FAERS Safety Report 6228593-2 (Version None)
Quarter: 2009Q2

REPORT INFORMATION
  Report Type: 
  Country: None (occurrence: None)
  Receive Date: 20090612
  Receipt Date: 20090608
  Transmission Date: 20091009
  Serious: Yes (Hospitalization)
  Sender: FDA-Public Use
  Company Number: US-GILEAD-2009-0022162

PATIENT
  Sex: Female

DRUGS (16)
  1. LETAIRIS [Suspect]
     Indication: PULMONARY ARTERIAL HYPERTENSION
     Route: 048
     Dates: start: 20090328, end: 20090420
  2. ASPIRIN [Concomitant]
  3. LASIX [Concomitant]
  4. HYDROCHLOROTHIAZIDE [Concomitant]
  5. COREG [Concomitant]
  6. NORVASC [Concomitant]
  7. NYSTATIN [Concomitant]
  8. LIPITOR [Concomitant]
  9. POTASSIUM CHLORIDE [Concomitant]
  10. GLYBURIDE [Concomitant]
  11. SYNTHROID [Concomitant]
  12. LEXAPRO [Concomitant]
  13. TRENTAL [Concomitant]
  14. CARBIDOPA [Concomitant]
  15. RANITIDINE [Concomitant]
  16. DITROPAN [Concomitant]

REACTIONS (1)
  - PULMONARY OEDEMA [None]
